FAERS Safety Report 5085125-2 (Version None)
Quarter: 2006Q3

REPORT INFORMATION
  Report Type: 
  Country: None (occurrence: None)
  Receive Date: 20060822
  Receipt Date: 20060203
  Transmission Date: 20061208
  Serious: Yes (Death, Disabling, Other)
  Sender: FDA-Public Use
  Company Number: PHRM2006FR00746

PATIENT
  Age: 56 Year
  Sex: Male
  Weight: 94 kg

DRUGS (5)
  1. ZOMETA [Suspect]
     Indication: METASTASES TO BONE
     Dosage: 4 MG, QMO
     Route: 042
     Dates: start: 20050115, end: 20060115
  2. RADIOTHERAPY [Suspect]
     Indication: METASTASES TO BONE
     Dates: start: 20050101, end: 20050101
  3. RADIOTHERAPY [Suspect]
     Dates: start: 20050601, end: 20050601
  4. TAXOTERE [Suspect]
     Indication: METASTASES TO BONE
     Dosage: 1 DF, TIW
     Route: 042
     Dates: start: 20050601
  5. SOLUPRED [Concomitant]
     Dosage: 20 MG DAILY
     Route: 048

REACTIONS (7)
  - BONE FISTULA [None]
  - CONDITION AGGRAVATED [None]
  - OSTEONECROSIS [None]
  - PROSTATE CANCER METASTATIC [None]
  - TOOTH EXTRACTION [None]
  - TOOTH LOSS [None]
  - TOOTHACHE [None]
